FAERS Safety Report 20608531 (Version 1)
Quarter: 2022Q1

REPORT INFORMATION
  Report Type: Spontaneous
  Country: US (occurrence: US)
  Receive Date: 20220317
  Receipt Date: 20220317
  Transmission Date: 20220423
  Serious: Yes (Other)
  Sender: FDA-Public Use
  Company Number: US-ALEMBIC PHARMACUETICALS LIMITED-2022SCAL000059

PATIENT

DRUGS (6)
  1. LEFLUNOMIDE [Suspect]
     Active Substance: LEFLUNOMIDE
     Indication: Rheumatoid arthritis
     Dosage: 20 MILLIGRAM, QD
     Route: 065
  2. CHOLESTYRAMINE [Suspect]
     Active Substance: CHOLESTYRAMINE
     Indication: Product used for unknown indication
     Dosage: UNK  WASHOUT FOR 11 DAYS
     Route: 065
  3. IBUPROFEN [Concomitant]
     Active Substance: IBUPROFEN
     Indication: Arthralgia
     Dosage: UNK DAILY
     Route: 065
  4. NAPROXEN [Concomitant]
     Active Substance: NAPROXEN
     Indication: Arthralgia
     Dosage: UNK DAILY
     Route: 065
  5. PREDNISONE [Concomitant]
     Active Substance: PREDNISONE
     Indication: Arthralgia
     Dosage: 5 MILLIGRAM, QD FOR JOINT PAIN
     Route: 065
  6. PREDNISONE [Concomitant]
     Active Substance: PREDNISONE
     Indication: Autoimmune hepatitis
     Dosage: UNK HIGH-DOSE FOR AUTOIMMUNE HEPATITIS
     Route: 065

REACTIONS (7)
  - Autoimmune hepatitis [Recovering/Resolving]
  - Liver injury [Recovering/Resolving]
  - Decreased appetite [Recovering/Resolving]
  - Fatigue [Recovering/Resolving]
  - Alanine aminotransferase increased [Recovering/Resolving]
  - Blood alkaline phosphatase increased [Recovering/Resolving]
  - Aspartate aminotransferase increased [Recovering/Resolving]
